FAERS Safety Report 6574726-8 (Version None)
Quarter: 2010Q1

REPORT INFORMATION
  Report Type: 
  Country: None (occurrence: None)
  Receive Date: 20100209
  Receipt Date: 20100129
  Transmission Date: 20100710
  Serious: Yes (Other)
  Sender: FDA-Public Use
  Company Number: PHHY2010GB05992

PATIENT
  Sex: Female

DRUGS (1)
  1. CLOZARIL [Suspect]

REACTIONS (1)
  - PANCREATIC CARCINOMA [None]
